FAERS Safety Report 6066599-7 (Version None)
Quarter: 2009Q1

REPORT INFORMATION
  Report Type: 
  Country: None (occurrence: None)
  Receive Date: 20090205
  Receipt Date: 20090129
  Transmission Date: 20090719
  Serious: Yes (Other)
  Sender: FDA-Public Use
  Company Number: B0555905A

PATIENT
  Age: 15 Year
  Sex: Male

DRUGS (4)
  1. RELENZA [Suspect]
     Indication: INFLUENZA
     Dosage: 10MG TWICE PER DAY
     Route: 055
     Dates: start: 20090119, end: 20090119
  2. CALONAL [Concomitant]
     Route: 048
     Dates: start: 20090119, end: 20090119
  3. UNKNOWN DRUG [Concomitant]
     Route: 054
     Dates: start: 20090119, end: 20090119
  4. TAMIFLU [Concomitant]

REACTIONS (1)
  - ABNORMAL BEHAVIOUR [None]
